FAERS Safety Report 6450796-2 (Version None)
Quarter: 2009Q4

REPORT INFORMATION
  Report Type: 
  Country: None (occurrence: None)
  Receive Date: 20091120
  Receipt Date: 20091120
  Transmission Date: 20100525
  Serious: Yes (Hospitalization)
  Sender: FDA-Public Use
  Company Number: None

PATIENT
  Age: 47 Year
  Sex: Female
  Weight: 50.35 kg

DRUGS (1)
  1. PROMETHAZINE [Suspect]
     Indication: MIGRAINE
     Dosage: 50 MG QID IV
     Route: 042
     Dates: start: 20080928, end: 20080928

REACTIONS (2)
  - HYPOAESTHESIA [None]
  - PHLEBITIS [None]
